FAERS Safety Report 4920931-3 (Version None)
Quarter: 2006Q1

REPORT INFORMATION
  Report Type: 
  Country: None (occurrence: None)
  Receive Date: 20060223
  Receipt Date: 20050713
  Transmission Date: 20060701
  Serious: Yes (Other)
  Sender: FDA-Public Use
  Company Number: US-MERCK-0507USA01782

PATIENT
  Age: 73 Year
  Sex: Female
  Weight: 87 kg

DRUGS (7)
  1. VIOXX [Suspect]
     Route: 048
     Dates: start: 20000918
  2. ZOCOR [Concomitant]
     Route: 065
     Dates: start: 20001102
  3. XANAX [Concomitant]
     Route: 048
  4. BENICAR [Concomitant]
     Route: 048
  5. AMBIEN [Concomitant]
     Route: 048
     Dates: start: 20000918
  6. SYNTHROID [Concomitant]
     Route: 048
  7. SYNTHROID [Concomitant]
     Route: 048
     Dates: start: 20000918

REACTIONS (4)
  - CEREBROVASCULAR ACCIDENT [None]
  - CHEST PAIN [None]
  - DYSPNOEA EXERTIONAL [None]
  - SLEEP APNOEA SYNDROME [None]
